FAERS Safety Report 16573944 (Version 2)
Quarter: 2019Q3

REPORT INFORMATION
  Report Type: Spontaneous
  Country: JP (occurrence: JP)
  Receive Date: 20190715
  Receipt Date: 20190718
  Transmission Date: 20191004
  Serious: Yes (Other)
  Sender: FDA-Public Use
  Company Number: JP-PFIZER INC-2019295617

PATIENT
  Age: 67 Year
  Sex: Female

DRUGS (2)
  1. INFLIXIMAB [Suspect]
     Active Substance: INFLIXIMAB
     Indication: UVEITIS
  2. INFLIXIMAB [Suspect]
     Active Substance: INFLIXIMAB
     Indication: BEHCET^S SYNDROME
     Dosage: 6 MG/KG, UNK (EVERY 8 WEEKS)

REACTIONS (5)
  - Product use in unapproved indication [Unknown]
  - Behcet^s syndrome [Recovered/Resolved with Sequelae]
  - Disease progression [Recovered/Resolved with Sequelae]
  - Off label use [Unknown]
  - Myelitis transverse [Recovered/Resolved with Sequelae]
